FAERS Safety Report 5735127-5 (Version None)
Quarter: 2008Q2

REPORT INFORMATION
  Report Type: 
  Country: None (occurrence: None)
  Receive Date: 20080508
  Receipt Date: 20080508
  Transmission Date: 20081010
  Serious: Yes (Other)
  Sender: FDA-Public Use
  Company Number: None

PATIENT
  Age: 35 Year
  Sex: Female
  Weight: 61.2356 kg

DRUGS (1)
  1. PROCREST MOUTHWASH CREST [Suspect]
     Indication: DENTAL DISORDER PROPHYLAXIS
     Dosage: CAPFUL 2 TIMES A DAY PO
     Route: 048
     Dates: start: 20080314, end: 20080316

REACTIONS (2)
  - AGEUSIA [None]
  - HYPOAESTHESIA ORAL [None]
